FAERS Safety Report 7445621-7 (Version None)
Quarter: 2011Q2

REPORT INFORMATION
  Report Type: 
  Country: None (occurrence: None)
  Receive Date: 20110429
  Receipt Date: 20110425
  Transmission Date: 20111010
  Serious: Yes (Hospitalization, Other)
  Sender: FDA-Public Use
  Company Number: IT-ROCHE-773328

PATIENT

DRUGS (3)
  1. OXALIPLATIN [Suspect]
     Dosage: 2 HOUR INFUSION ON DAY 1
     Route: 042
  2. CAPECITABINE [Suspect]
     Dosage: FOR 14 DAYS REPEATED EVERY 3 WEEKS
     Route: 048
  3. TNF [Suspect]
     Dosage: DRUG: NGR-HTNF; GIVEN IN 1 HOUR AT 0.8 UG/M2 OR 45 UG/M2 IN LOW AND HIGH DOSE COHORTS RESPECTIVELY
     Route: 042

REACTIONS (9)
  - HYPERSENSITIVITY [None]
  - VOMITING [None]
  - DECREASED APPETITE [None]
  - PARAESTHESIA [None]
  - FATIGUE [None]
  - GAMMA-GLUTAMYLTRANSFERASE INCREASED [None]
  - HYPERGLYCAEMIA [None]
  - HYPERURICAEMIA [None]
  - DIARRHOEA [None]
